FAERS Safety Report 5567034-5 (Version None)
Quarter: 2007Q4

REPORT INFORMATION
  Report Type: 
  Country: None (occurrence: None)
  Receive Date: 20071219
  Receipt Date: 20071210
  Transmission Date: 20080405
  Serious: Yes (Hospitalization)
  Sender: FDA-Public Use
  Company Number: US-ASTRAZENECA-2007AC02486

PATIENT
  Age: 17 Year
  Sex: Female

DRUGS (2)
  1. TOPROL-XL [Suspect]
     Dates: start: 20010601
  2. TEGRETOL [Suspect]
     Indication: EPILEPSY
     Dates: end: 20010601

REACTIONS (2)
  - CONVULSION [None]
  - DRUG DISPENSING ERROR [None]
